FAERS Safety Report 4570600-7 (Version None)
Quarter: 2005Q1

REPORT INFORMATION
  Report Type: 
  Country: None (occurrence: None)
  Receive Date: 20050204
  Receipt Date: 20041209
  Transmission Date: 20050727
  Serious: Yes (Hospitalization)
  Sender: FDA-Public Use
  Company Number: JP-GLAXOSMITHKLINE-B0360621A

PATIENT
  Age: 29 Year
  Sex: Female
  Weight: 57 kg

DRUGS (15)
  1. PAXIL [Suspect]
     Indication: DEPRESSION
     Dosage: 10MG PER DAY
     Route: 048
     Dates: start: 20040922, end: 20041108
  2. SEDIEL [Suspect]
     Indication: DEPRESSION
     Dosage: .5MG TWICE PER DAY
     Route: 048
     Dates: start: 20041102, end: 20041108
  3. TOLEDOMIN [Concomitant]
     Dosage: 25MG PER DAY
     Route: 048
     Dates: start: 20041006
  4. LORAZEPAM [Concomitant]
     Dosage: 1MG PER DAY
     Route: 048
     Dates: start: 20040922
  5. DOGMATYL [Concomitant]
     Indication: DEPRESSION
     Dosage: 50MG PER DAY
     Route: 048
     Dates: start: 20041020, end: 20041101
  6. SELBEX [Concomitant]
     Indication: GASTROINTESTINAL DISORDER
     Dosage: 1.5G PER DAY
     Route: 048
     Dates: start: 20041028, end: 20041101
  7. GANATON [Concomitant]
     Indication: GASTROINTESTINAL DISORDER
     Dosage: 3U PER DAY
     Route: 048
     Dates: start: 20041028, end: 20041101
  8. LENDORMIN [Concomitant]
     Indication: INSOMNIA
     Dosage: .25MG PER DAY
     Route: 048
     Dates: start: 20041006
  9. PA [Concomitant]
     Indication: NASOPHARYNGITIS
     Dosage: 3TAB PER DAY
     Route: 048
     Dates: start: 20041102, end: 20041101
  10. NEUTAZE [Concomitant]
     Indication: NASOPHARYNGITIS
     Dosage: 3TAB PER DAY
     Route: 048
     Dates: start: 20041102, end: 20041101
  11. U PAN [Concomitant]
     Indication: DEPRESSION
     Dosage: 1MG PER DAY
     Route: 048
     Dates: start: 20040922, end: 20041102
  12. BETAMAC T [Concomitant]
     Indication: DEPRESSION
     Dosage: 50MG PER DAY
     Route: 048
     Dates: start: 20041020, end: 20041101
  13. COLD MEDICATION [Concomitant]
     Dates: start: 20041102
  14. LYSOZYME HYDROCHLORIDE [Concomitant]
     Dates: start: 20041102
  15. CLARITHROMYCIN [Concomitant]
     Dates: start: 20041108

REACTIONS (9)
  - DECREASED APPETITE [None]
  - DRUG INTERACTION [None]
  - HYPERTHERMIA [None]
  - HYPOXIA [None]
  - INTERSTITIAL LUNG DISEASE [None]
  - IRRITABILITY [None]
  - NASOPHARYNGITIS [None]
  - PYREXIA [None]
  - STOMACH DISCOMFORT [None]
